FAERS Safety Report 4549934-8 (Version None)
Quarter: 2004Q4

REPORT INFORMATION
  Report Type: 
  Country: None (occurrence: None)
  Receive Date: 20041230
  Receipt Date: 20040517
  Transmission Date: 20050328
  Serious: Yes (Hospitalization)
  Sender: FDA-Public Use
  Company Number: 04-05-0705

PATIENT
  Age: 67 Year
  Sex: Male

DRUGS (1)
  1. CLOZAPINE [Suspect]
     Indication: SCHIZOPHRENIA
     Dosage: 75-300MG QD ORAL
     Route: 048
     Dates: start: 19990201

REACTIONS (3)
  - AGITATION [None]
  - DELUSION [None]
  - INSOMNIA [None]
